FAERS Safety Report 16891472 (Version 1)
Quarter: 2019Q4

REPORT INFORMATION
  Report Type: Spontaneous
  Country: DE (occurrence: DE)
  Receive Date: 20191007
  Receipt Date: 20191007
  Transmission Date: 20200122
  Serious: Yes (Hospitalization)
  Sender: FDA-Public Use
  Company Number: DE-MYLANLABS-2019M1092165

PATIENT
  Age: 51 Year
  Sex: Female
  Weight: 55 kg

DRUGS (18)
  1. ERBITUX [Suspect]
     Active Substance: CETUXIMAB
     Indication: ORAL CAVITY CANCER METASTATIC
     Dosage: UNK
     Dates: start: 20190222
  2. MORPHINE [Concomitant]
     Active Substance: MORPHINE
     Indication: CANCER PAIN
     Dosage: 10 MILLIGRAM, 0.5 DAY
     Dates: start: 20181021
  3. DIFLUCAN [Concomitant]
     Active Substance: FLUCONAZOLE
     Indication: MUCOSAL INFLAMMATION
     Dosage: 40 MILLIGRAM/SQ. METER, QD
     Route: 048
     Dates: start: 20181022
  4. CLINDAMYCIN. [Concomitant]
     Active Substance: CLINDAMYCIN
     Indication: PROPHYLAXIS
     Dosage: MG
     Route: 048
     Dates: start: 20181001, end: 20181004
  5. SOVENTOL                           /00096902/ [Concomitant]
     Indication: RASH
     Dosage: 20 MG/G
     Route: 061
     Dates: start: 20181109, end: 20181115
  6. ANAESTHESIN-RIVANOL-PASTILLEN [Concomitant]
     Indication: MUCOSAL INFLAMMATION
     Dosage: 8 MILLIGRAM
     Route: 048
     Dates: start: 20181101
  7. DEXAMETASON                        /00016001/ [Concomitant]
     Active Substance: DEXAMETHASONE
     Indication: SWELLING FACE
     Dosage: 8 MILLIGRAM, 33.3 DAYS
     Route: 048
     Dates: start: 20180220
  8. CISPLATIN. [Suspect]
     Active Substance: CISPLATIN
     Indication: ORAL CAVITY CANCER METASTATIC
     Dosage: UNK
     Dates: start: 20190222
  9. ONDANSETRON [Concomitant]
     Active Substance: ONDANSETRON
     Indication: PROPHYLAXIS
     Dosage: 8 MILLIGRAM, (33.3 DAYS)
     Route: 048
     Dates: start: 20190220, end: 20190226
  10. AMPHO MORONAL [Concomitant]
     Active Substance: AMPHOTERICIN B
     Indication: MUCOSAL INFLAMMATION
     Dosage: 100 MILLIGRAM/SQ. METER, 0.25 DAYS
     Route: 048
     Dates: start: 20181030
  11. SIMMONDSIA CHINENSIS OIL W/ZINC OXIDE [Concomitant]
     Indication: RASH
     Dosage: UNK
     Route: 061
     Dates: start: 20181109, end: 20181115
  12. CEFUROXIME. [Concomitant]
     Active Substance: CEFUROXIME
     Indication: PYREXIA
     Dosage: 500 MILLIGRAM, 0.5 DAY
     Route: 048
     Dates: start: 20190103, end: 20190105
  13. CIPROFLOXACIN. [Concomitant]
     Active Substance: CIPROFLOXACIN
     Indication: MUCOSAL INFLAMMATION
     Dosage: 250 MILLIGRAM, 0.5 DAY
     Route: 048
     Dates: start: 20181114, end: 20181120
  14. DEXAMETASON                        /00016001/ [Concomitant]
     Active Substance: DEXAMETHASONE
     Dosage: 4 MILLIGRAM 0.5 DAY
     Route: 048
     Dates: start: 20181010
  15. PANTOPRAZOLE [Concomitant]
     Active Substance: PANTOPRAZOLE
     Indication: PROPHYLAXIS
     Dosage: 40 MILLIGRAM, QD
     Route: 048
  16. FENISTIL [Concomitant]
     Active Substance: DIMETHINDENE
     Indication: RASH
     Dosage: 1 MG/G
     Route: 061
     Dates: start: 20181109, end: 20181115
  17. FLUOROURACIL. [Suspect]
     Active Substance: FLUOROURACIL
     Indication: ORAL CAVITY CANCER METASTATIC
     Dosage: UNK
     Dates: start: 20190222
  18. LORAZEPAM. [Concomitant]
     Active Substance: LORAZEPAM
     Indication: PRODUCT USED FOR UNKNOWN INDICATION
     Dosage: 0.5 MILLIGRAM
     Dates: start: 20181008

REACTIONS (8)
  - Back pain [Unknown]
  - Nausea [Unknown]
  - Hypophagia [Unknown]
  - Flank pain [Unknown]
  - General physical health deterioration [Recovered/Resolved]
  - Asthenia [Unknown]
  - Oliguria [Unknown]
  - Diarrhoea [Unknown]

NARRATIVE: CASE EVENT DATE: 20190228
